FAERS Safety Report 10021400 (Version 2)
Quarter: 2014Q2

REPORT INFORMATION
  Report Type: Spontaneous
  Country: DK (occurrence: DE)
  Receive Date: 20140319
  Receipt Date: 20140521
  Transmission Date: 20141212
  Serious: Yes (Other)
  Sender: FDA-Public Use
  Company Number: DE-FRI-1000064644

PATIENT
  Age: 28 Year
  Sex: Female
  Weight: 59 kg

DRUGS (4)
  1. CITALOPRAM [Suspect]
     Indication: DEPRESSION
     Dosage: 20 MG
     Route: 048
     Dates: start: 20140206
  2. L-THYROXIN [Concomitant]
     Dosage: 50 MCG
     Route: 048
     Dates: end: 20140205
  3. L-THYROXIN [Concomitant]
     Dosage: 75 MCG
     Route: 048
     Dates: start: 20140206, end: 20140213
  4. L-THYROXIN [Concomitant]
     Dosage: 50 MCG
     Route: 048
     Dates: start: 20140214

REACTIONS (2)
  - Thrombocytopenia [Recovered/Resolved]
  - Vessel puncture site haematoma [Recovered/Resolved]
